FAERS Safety Report 5561024-4 (Version None)
Quarter: 2007Q4

REPORT INFORMATION
  Report Type: 
  Country: None (occurrence: None)
  Receive Date: 20071215
  Receipt Date: 20071129
  Transmission Date: 20080405
  Serious: No
  Sender: FDA-Public Use
  Company Number: US-ABBOTT-07P-163-0426859-00

PATIENT
  Sex: Male
  Weight: 81.72 kg

DRUGS (9)
  1. HUMIRA [Suspect]
     Indication: COLITIS ULCERATIVE
     Route: 058
     Dates: start: 20071105, end: 20071105
  2. HUMIRA [Suspect]
     Route: 058
     Dates: start: 20071119, end: 20071119
  3. HUMIRA [Suspect]
     Route: 058
     Dates: start: 20071203
  4. BYETTA [Concomitant]
     Indication: TYPE 2 DIABETES MELLITUS
  5. GLUGOPHAGE [Concomitant]
     Indication: TYPE 2 DIABETES MELLITUS
  6. BLOOD PRESSURE MEDICATION [Concomitant]
     Indication: BLOOD PRESSURE INCREASED
  7. AZTHIOPRINE [Concomitant]
     Indication: DRUG USE FOR UNKNOWN INDICATION
  8. GLYBURIDE [Concomitant]
     Indication: DRUG USE FOR UNKNOWN INDICATION
  9. HYDROCHLOROTHIAZIDE [Concomitant]
     Indication: DRUG USE FOR UNKNOWN INDICATION

REACTIONS (5)
  - GINGIVAL RECESSION [None]
  - RESORPTION BONE INCREASED [None]
  - TOOTH DISORDER [None]
  - TOOTH INFECTION [None]
  - TOOTHACHE [None]
